FAERS Safety Report 8287835-2 (Version None)
Quarter: 2012Q2

REPORT INFORMATION
  Report Type: 
  Country: None (occurrence: None)
  Receive Date: 20120416
  Receipt Date: 20120410
  Transmission Date: 20120825
  Serious: Yes (Other)
  Sender: FDA-Public Use
  Company Number: US-PFIZER INC-2012089634

PATIENT
  Sex: Female
  Weight: 104 kg

DRUGS (7)
  1. NORVASC [Concomitant]
     Indication: HYPERTENSION
     Dosage: UNK, 1X/DAY
  2. EFFEXOR XR [Suspect]
     Indication: BIPOLAR I DISORDER
     Dosage: 150 MG, 2X/DAY
     Route: 048
  3. ZESTRIL [Concomitant]
     Indication: HYPERTENSION
     Dosage: UNK, 1X/DAY
  4. TRAZODONE [Concomitant]
     Indication: SLEEP DISORDER
     Dosage: UNK
  5. METOPROLOL [Concomitant]
     Indication: HYPERTENSION
     Dosage: 75 MG, 1X/DAY
  6. TRIAMTERENE [Concomitant]
     Indication: HYPERTENSION
     Dosage: UNK, 1X/DAY
  7. KLONOPIN [Concomitant]
     Dosage: 2 MG, AS NEEDED

REACTIONS (3)
  - DRUG ADMINISTRATION ERROR [None]
  - ROAD TRAFFIC ACCIDENT [None]
  - PARANOIA [None]
